FAERS Safety Report 8255108-X (Version None)
Quarter: 2012Q2

REPORT INFORMATION
  Report Type: 
  Country: None (occurrence: None)
  Receive Date: 20120403
  Receipt Date: 20120328
  Transmission Date: 20120825
  Serious: Yes (Death, Hospitalization)
  Sender: FDA-Public Use
  Company Number: GR-JNJFOC-20120315145

PATIENT
  Age: 56 Year
  Sex: Male

DRUGS (4)
  1. PARNAPARIN SODIUM [Concomitant]
     Indication: DEEP VEIN THROMBOSIS
  2. PARNAPARIN SODIUM [Concomitant]
     Indication: THROMBOSIS PROPHYLAXIS
  3. XARELTO [Suspect]
     Indication: THROMBOSIS PROPHYLAXIS
     Route: 048
  4. XARELTO [Suspect]
     Indication: KNEE ARTHROPLASTY
     Route: 048

REACTIONS (2)
  - PULMONARY EMBOLISM [None]
  - DEEP VEIN THROMBOSIS [None]
